FAERS Safety Report 10186809 (Version 2)
Quarter: 2014Q2

REPORT INFORMATION
  Report Type: Spontaneous
  Country: US (occurrence: US)
  Receive Date: 20140521
  Receipt Date: 20140521
  Transmission Date: 20141212
  Serious: Yes (Other)
  Sender: FDA-Public Use
  Company Number: US-PFIZER INC-2004210848US

PATIENT
  Age: 83 Year
  Sex: Male
  Weight: 61 kg

DRUGS (10)
  1. AZITHROMYCIN [Suspect]
     Indication: PNEUMONIA
     Dosage: 500.0 MG, DAILY
     Route: 042
     Dates: start: 20020515, end: 20020517
  2. WARFARIN [Suspect]
     Indication: ATRIAL FIBRILLATION
     Dosage: UNK
     Dates: end: 20020515
  3. ALBUTEROL [Concomitant]
  4. CEFTRIAXONE [Concomitant]
     Dosage: UNK
     Route: 042
     Dates: start: 20020515, end: 20020517
  5. ERYTHROPOIETIN [Concomitant]
     Route: 058
  6. IPRATROPIUM [Concomitant]
  7. IRON PREPARATIONS [Concomitant]
  8. ISOSORBIDE DINITRATE [Concomitant]
  9. METOPROLOL [Concomitant]
  10. RANITIDINE [Concomitant]

REACTIONS (2)
  - Drug interaction [Unknown]
  - Hypoprothrombinaemia [Recovered/Resolved]
